FAERS Safety Report 8991230 (Version 1)
Quarter: 2012Q4

REPORT INFORMATION
  Report Type: Spontaneous
  Country: US (occurrence: None)
  Receive Date: 20121220
  Receipt Date: 20121220
  Transmission Date: 20130627
  Serious: Yes (Other)
  Sender: FDA-Public Use
  Company Number: 2012-22027

PATIENT
  Age: 59 Year
  Sex: Female

DRUGS (16)
  1. METFORMIN HYDROCHLORIDE [Suspect]
     Dosage: 1000 mg, bid, Unknown
  2. METFORMIN HYDROCHLORIDE [Suspect]
     Dosage: 500 mg, daily, increasing by 500 mg q 3-5 days, Unknown
  3. LEVOTHYROXINE [Concomitant]
  4. INSULIN DETEMIR (INSULIN DETEMIR) [Concomitant]
  5. INSULIN ASPART (INSULIN ASPART) [Concomitant]
  6. ALENDRONATE (ALENDRONATE SODIUM) [Concomitant]
  7. ASPIRIN (ACETYLSALICYLIC ACID) [Suspect]
  8. LISINOPRIL (LISINOPRIL) [Concomitant]
  9. SIMCASTATIN (SIMVASTATIN) [Concomitant]
  10. CYANOCOBALAMIN (CYANOCOBALAMIN) [Concomitant]
  11. CITALOPRAM (CITALOPRAM) [Concomitant]
  12. PROMETHAZINE (PROMETHAZINE) [Concomitant]
  13. LORAZEPAM (LORAZEPAM) [Concomitant]
  14. HYDROCODONE/ACETAMINOPHEN /0067101/ (HYDROCODONE BITARTRATE, PARACETAMOL) [Concomitant]
  15. VITAMIN C /00008001/ (ASCORBIC ACID) [Concomitant]
  16. CALCIUM VITAMIN D (CALCIUM, COLECALCIFEROL) [Concomitant]

REACTIONS (6)
  - Drug interaction [None]
  - Pancreatitis chronic [None]
  - Abdominal pain upper [None]
  - Nausea [None]
  - Hypophagia [None]
  - Blood glucose increased [None]
